FAERS Safety Report 8281894 (Version 6)
Quarter: 2019Q2

REPORT INFORMATION
  Report Type: Report from Study
  Country: KR (occurrence: KR)
  Receive Date: 20111209
  Receipt Date: 20190620
  Transmission Date: 20190711
  Serious: Yes (Hospitalization, Other)
  Sender: FDA-Public Use
  Company Number: KR-PFIZER INC-2011288949

PATIENT
  Age: 58 Year
  Sex: Male
  Weight: 55.6 kg

DRUGS (2)
  1. CODEINE [Concomitant]
     Active Substance: CODEINE
     Indication: COUGH
     Dosage: 20 MG, AS NEEDED
     Route: 048
     Dates: start: 20111019
  2. CRIZOTINIB [Suspect]
     Active Substance: CRIZOTINIB
     Indication: NON-SMALL CELL LUNG CANCER
     Dosage: 250 MG, 2X/DAY
     Route: 048
     Dates: start: 20111028, end: 20111128

REACTIONS (1)
  - Drug-induced liver injury [Recovered/Resolved]

NARRATIVE: CASE EVENT DATE: 20111128
